FAERS Safety Report 11410562 (Version 2)
Quarter: 2015Q4

REPORT INFORMATION
  Report Type: Spontaneous
  Country: US (occurrence: US)
  Receive Date: 20150824
  Receipt Date: 20151014
  Transmission Date: 20160304
  Serious: No
  Sender: FDA-Public Use
  Company Number: US-PFIZER INC-2015273709

PATIENT
  Age: 69 Year
  Sex: Female

DRUGS (4)
  1. SERTRALINE [Concomitant]
     Active Substance: SERTRALINE HYDROCHLORIDE
     Dosage: UNK
     Dates: start: 1998
  2. LIPITOR [Suspect]
     Active Substance: ATORVASTATIN CALCIUM
     Indication: BLOOD CHOLESTEROL ABNORMAL
     Dosage: 1X/DAY
     Dates: start: 1997
  3. METFORMIN [Concomitant]
     Active Substance: METFORMIN HYDROCHLORIDE
     Dosage: UNK
  4. LIPITOR [Suspect]
     Active Substance: ATORVASTATIN CALCIUM
     Dosage: 10 MG, 1X/DAY (AT NIGHT)
     Dates: start: 20150714

REACTIONS (1)
  - Muscular weakness [Not Recovered/Not Resolved]

NARRATIVE: CASE EVENT DATE: 2006
